FAERS Safety Report 6925244-6 (Version None)
Quarter: 2010Q3

REPORT INFORMATION
  Report Type: 
  Country: None (occurrence: None)
  Receive Date: 20100811
  Receipt Date: 20100802
  Transmission Date: 20110219
  Serious: Yes (Other)
  Sender: FDA-Public Use
  Company Number: 2010US003124

PATIENT
  Age: 42 Year
  Sex: Male
  Weight: 88 kg

DRUGS (5)
  1. PROGRAF [Suspect]
     Indication: RENAL TRANSPLANT
     Dosage: 5 MG, BID, ORAL
     Route: 048
     Dates: start: 20060628
  2. LISINOPRIL [Concomitant]
  3. CALCITRIOL [Concomitant]
  4. NOVOLOG [Concomitant]
  5. LANTUS [Concomitant]

REACTIONS (4)
  - BK VIRUS INFECTION [None]
  - BLOOD DISORDER [None]
  - INFECTION IN AN IMMUNOCOMPROMISED HOST [None]
  - KIDNEY INFECTION [None]
